FAERS Safety Report 5591411-X (Version None)
Quarter: 2008Q1

REPORT INFORMATION
  Report Type: 
  Country: None (occurrence: None)
  Receive Date: 20080111
  Receipt Date: 20080102
  Transmission Date: 20080703
  Serious: Yes (Hospitalization)
  Sender: FDA-Public Use
  Company Number: 2007BI019235

PATIENT
  Age: 48 Year
  Sex: Female
  Weight: 47.6277 kg

DRUGS (2)
  1. TYSABRI [Suspect]
     Indication: MULTIPLE SCLEROSIS
     Dosage: 300 MG; QM; IV
     Route: 042
     Dates: start: 20041228
  2. DETROL LA [Concomitant]

REACTIONS (5)
  - CONDITION AGGRAVATED [None]
  - DEHYDRATION [None]
  - HYPERTONIC BLADDER [None]
  - MULTIPLE SCLEROSIS [None]
  - PREGNANCY TEST FALSE POSITIVE [None]
